FAERS Safety Report 9097018 (Version 1)
Quarter: 2013Q1

REPORT INFORMATION
  Report Type: Spontaneous
  Country: US (occurrence: None)
  Receive Date: 20130124
  Receipt Date: 20130124
  Transmission Date: 20140127
  Serious: Yes (Hospitalization, Other)
  Sender: FDA-Public Use
  Company Number: IPC201301-000002

PATIENT
  Age: 50 Year
  Sex: Female
  Weight: 108.8 kg

DRUGS (6)
  1. FUROSEMIDE [Suspect]
     Route: 048
     Dates: start: 20080810
  2. INDOMETHACIN [Suspect]
     Dates: start: 2008, end: 200809
  3. MORPHINE [Concomitant]
  4. CLONAZEPAM [Concomitant]
  5. GEODON [Concomitant]
  6. CYMBALTA [Concomitant]

REACTIONS (10)
  - Renal failure [None]
  - Blood potassium decreased [None]
  - Abasia [None]
  - Asthenia [None]
  - Dehydration [None]
  - Back pain [None]
  - Abdominal pain upper [None]
  - Urinary retention [None]
  - Feeling abnormal [None]
  - Muscular weakness [None]
